FAERS Safety Report 24651588 (Version 1)
Quarter: 2024Q4

REPORT INFORMATION
  Report Type: Spontaneous
  Country: IE (occurrence: IE)
  Receive Date: 20241122
  Receipt Date: 20241122
  Transmission Date: 20250114
  Serious: Yes (Disabling, Other)
  Sender: GALDERMA
  Company Number: None

PATIENT

DRUGS (5)
  1. SOOLANTRA [Suspect]
     Active Substance: IVERMECTIN
     Indication: Rosacea
     Dosage: 1 DOSAGE FORM
     Route: 061
     Dates: start: 20230731
  2. INFLUVAC TETRA [Concomitant]
     Active Substance: INFLUENZA VIRUS VACCINE QUADRIVALENT TYPE A+B
     Indication: Immunisation
     Dosage: ONE STAT DOSE
     Dates: start: 20241010, end: 20241010
  3. WARFARIN [Concomitant]
     Active Substance: WARFARIN
     Indication: Mitral valve replacement
     Dates: start: 20071029
  4. ATORVASTATIN [Concomitant]
     Active Substance: ATORVASTATIN
     Indication: Prophylaxis
     Dates: start: 20141029
  5. BISOPROLOL (GENERIC) [Concomitant]
     Indication: Hypertension
     Dates: start: 20111029

REACTIONS (2)
  - Retinal vein occlusion [Not Recovered/Not Resolved]
  - Visual acuity reduced [Not Recovered/Not Resolved]

NARRATIVE: CASE EVENT DATE: 20241011
